FAERS Safety Report 4543011-8 (Version None)
Quarter: 2005Q1

REPORT INFORMATION
  Report Type: 
  Country: None (occurrence: None)
  Receive Date: 20050103
  Receipt Date: 20041224
  Transmission Date: 20050727
  Serious: Yes (Other)
  Sender: FDA-Public Use
  Company Number: FR-JNJFOC-20041206732

PATIENT
  Age: 51 Year
  Sex: Male

DRUGS (2)
  1. REMICADE [Suspect]
     Indication: CROHN'S DISEASE
     Route: 042
  2. REMICADE [Suspect]
     Indication: SPONDYLOARTHROPATHY
     Route: 042

REACTIONS (3)
  - CYTOMEGALOVIRUS INFECTION [None]
  - EPSTEIN-BARR VIRUS INFECTION [None]
  - PNEUMOCYSTIS JIROVECI PNEUMONIA [None]
